FAERS Safety Report 16847030 (Version 4)
Quarter: 2024Q1

REPORT INFORMATION
  Report Type: Spontaneous
  Country: US (occurrence: US)
  Receive Date: 20190924
  Receipt Date: 20240207
  Transmission Date: 20240410
  Serious: Yes (Hospitalization, Other)
  Sender: FDA-Public Use
  Company Number: US-GILEAD-2019-0429491

PATIENT
  Age: 64 Year
  Sex: Female
  Weight: 49.887 kg

DRUGS (51)
  1. VIREAD [Suspect]
     Active Substance: TENOFOVIR DISOPROXIL FUMARATE
     Indication: HIV infection
     Dosage: UNK
     Route: 048
     Dates: start: 20170601, end: 201810
  2. ATRIPLA [Suspect]
     Active Substance: EFAVIRENZ\EMTRICITABINE\TENOFOVIR DISOPROXIL FUMARATE
     Indication: HIV infection
     Dosage: UNK
     Route: 048
     Dates: start: 20121011, end: 201711
  3. TRUVADA [Suspect]
     Active Substance: EMTRICITABINE\TENOFOVIR DISOPROXIL FUMARATE
     Indication: HIV infection
     Dosage: UNK
     Route: 048
     Dates: start: 2004, end: 2005
  4. TRUVADA [Suspect]
     Active Substance: EMTRICITABINE\TENOFOVIR DISOPROXIL FUMARATE
     Dosage: UNK
     Route: 048
     Dates: start: 2017, end: 2017
  5. TRUVADA [Suspect]
     Active Substance: EMTRICITABINE\TENOFOVIR DISOPROXIL FUMARATE
     Dosage: UNK
     Route: 048
     Dates: start: 2004, end: 2012
  6. EPIVIR [Concomitant]
     Active Substance: LAMIVUDINE
  7. GENVOYA [Concomitant]
     Active Substance: COBICISTAT\ELVITEGRAVIR\EMTRICITABINE\TENOFOVIR ALAFENAMIDE FUMARATE
  8. SUSTIVA [Concomitant]
     Active Substance: EFAVIRENZ
  9. TIVICAY [Concomitant]
     Active Substance: DOLUTEGRAVIR SODIUM
  10. TRIUMEQ [Concomitant]
     Active Substance: ABACAVIR SULFATE\DOLUTEGRAVIR SODIUM\LAMIVUDINE
  11. ZIAGEN [Concomitant]
     Active Substance: ABACAVIR SULFATE
  12. ACETAMINOPHEN [Concomitant]
     Active Substance: ACETAMINOPHEN
  13. POTASSIUM BICARBONATE [Concomitant]
     Active Substance: POTASSIUM BICARBONATE
  14. INSULIN NOS [Concomitant]
     Active Substance: INSULIN NOS
  15. METOCLOPRAMIDE [Concomitant]
     Active Substance: METOCLOPRAMIDE
  16. MAGNESIUM SULFATE [Concomitant]
     Active Substance: MAGNESIUM SULFATE\MAGNESIUM SULFATE HEPTAHYDRATE
  17. PANTOPRAZOLE [Concomitant]
     Active Substance: PANTOPRAZOLE
  18. CEFEPIME [Concomitant]
     Active Substance: CEFEPIME HYDROCHLORIDE
  19. ESTRADIOL [Concomitant]
     Active Substance: ESTRADIOL
  20. MEROPENEM [Concomitant]
     Active Substance: MEROPENEM
  21. CALCIUM GLUCONATE [Concomitant]
     Active Substance: CALCIUM GLUCONATE
  22. BUPROPION [Concomitant]
     Active Substance: BUPROPION
  23. DEXAMETHASONE [Concomitant]
     Active Substance: DEXAMETHASONE
  24. ARIPIPRAZOLE [Concomitant]
     Active Substance: ARIPIPRAZOLE
  25. ENOXAPARIN [Concomitant]
     Active Substance: ENOXAPARIN
  26. EPINEPHRINE [Concomitant]
     Active Substance: EPINEPHRINE
  27. ZOSYN [Concomitant]
     Active Substance: PIPERACILLIN SODIUM\TAZOBACTAM SODIUM
  28. VANCOMYCIN [Concomitant]
     Active Substance: VANCOMYCIN
  29. CEFTRIAXONE SODIUM [Concomitant]
     Active Substance: CEFTRIAXONE SODIUM
  30. CEFTRIAXONE [Concomitant]
     Active Substance: CEFTRIAXONE\CEFTRIAXONE SODIUM
  31. IPRATROPIUM [Concomitant]
     Active Substance: IPRATROPIUM
  32. CEFADROXIL [Concomitant]
     Active Substance: CEFADROXIL
  33. DEXAMETHASONE [Concomitant]
     Active Substance: DEXAMETHASONE
  34. AMBIEN [Concomitant]
     Active Substance: ZOLPIDEM TARTRATE
  35. PEPCID [Concomitant]
     Active Substance: FAMOTIDINE
  36. ROSUVASTATIN [Concomitant]
     Active Substance: ROSUVASTATIN
  37. CEFIXIME [Concomitant]
     Active Substance: CEFIXIME
  38. LOVAZA [Concomitant]
     Active Substance: OMEGA-3-ACID ETHYL ESTERS
  39. ALPRAZOLAM [Concomitant]
     Active Substance: ALPRAZOLAM
  40. CELECOXIB [Concomitant]
     Active Substance: CELECOXIB
  41. DECADRON [Concomitant]
     Active Substance: DEXAMETHASONE
  42. CRESTOR [Concomitant]
     Active Substance: ROSUVASTATIN CALCIUM
  43. ZOLPIDEM TARTRATE [Concomitant]
     Active Substance: ZOLPIDEM TARTRATE
  44. ATORVASTATIN [Concomitant]
     Active Substance: ATORVASTATIN
  45. FUROSEMIDE [Concomitant]
     Active Substance: FUROSEMIDE
  46. LEVOFLOXACIN [Concomitant]
     Active Substance: LEVOFLOXACIN
  47. TRAZODONE [Concomitant]
     Active Substance: TRAZODONE HYDROCHLORIDE
  48. SACCHAROMYCES CEREVISIAE [Concomitant]
     Active Substance: SACCHAROMYCES CEREVISIAE
  49. VIVELLE-DOT [Concomitant]
     Active Substance: ESTRADIOL
  50. OMEGA-3-ACID ETHYL ESTER [Concomitant]
     Active Substance: OMEGA-3-ACID ETHYL ESTERS
  51. ASPIRIN [Concomitant]
     Active Substance: ASPIRIN

REACTIONS (18)
  - Renal failure [Not Recovered/Not Resolved]
  - End stage renal disease [Not Recovered/Not Resolved]
  - Osteoporosis [Not Recovered/Not Resolved]
  - Acute kidney injury [Not Recovered/Not Resolved]
  - Renal tubular necrosis [Not Recovered/Not Resolved]
  - Osteopenia [Not Recovered/Not Resolved]
  - Loss of personal independence in daily activities [Unknown]
  - Decreased activity [Unknown]
  - Mobility decreased [Not Recovered/Not Resolved]
  - Quality of life decreased [Unknown]
  - Anhedonia [Not Recovered/Not Resolved]
  - Emotional distress [Not Recovered/Not Resolved]
  - Anxiety [Not Recovered/Not Resolved]
  - Fatigue [Not Recovered/Not Resolved]
  - Pain [Not Recovered/Not Resolved]
  - Carpal tunnel syndrome [Not Recovered/Not Resolved]
  - Fistula [Not Recovered/Not Resolved]
  - Anaemia of chronic disease [Not Recovered/Not Resolved]

NARRATIVE: CASE EVENT DATE: 20150409
